FAERS Safety Report 5270830-5 (Version None)
Quarter: 2007Q1

REPORT INFORMATION
  Report Type: 
  Country: None (occurrence: None)
  Receive Date: 20061214
  Receipt Date: 20051128
  Transmission Date: 20070707
  Serious: Yes (Hospitalization, Other)
  Sender: FDA-Public Use
  Company Number: 2005130996

PATIENT
  Age: 45 Year
  Sex: Female
  Weight: 58.514 kg

DRUGS (4)
  1. BEXTRA [Suspect]
     Indication: BACK PAIN
     Dosage: 10 MG (10 MG, 1 IN 1 D); UNK
     Dates: start: 20041001, end: 20050401
  2. LOPRESSOR [Suspect]
     Indication: ACUTE MYOCARDIAL INFARCTION
     Dosage: 25 MG (12.5 MG, 2 IN 1 D), ORAL
     Route: 048
     Dates: start: 20050908, end: 20050928
  3. LOPRESSOR [Suspect]
     Indication: HEART RATE INCREASED
     Dosage: 25 MG (12.5 MG, 2 IN 1 D), ORAL
     Route: 048
     Dates: start: 20050908, end: 20050928
  4. TOPAMAX [Concomitant]

REACTIONS (10)
  - DIZZINESS [None]
  - FATIGUE [None]
  - HEADACHE [None]
  - HEMIPARESIS [None]
  - HYPOTENSION [None]
  - LOSS OF CONSCIOUSNESS [None]
  - MITRAL VALVE PROLAPSE [None]
  - MYOCARDIAL INFARCTION [None]
  - NIGHTMARE [None]
  - TRICUSPID VALVE INCOMPETENCE [None]
